FAERS Safety Report 17700853 (Version 1)
Quarter: 2020Q2

REPORT INFORMATION
  Report Type: Report from Study
  Country: CA (occurrence: CA)
  Receive Date: 20200424
  Receipt Date: 20200424
  Transmission Date: 20200714
  Serious: Yes (Other)
  Sender: FDA-Public Use
  Company Number: CA-INCYTE CORPORATION-2020IN003764

PATIENT

DRUGS (1)
  1. JAKAVI [Suspect]
     Active Substance: RUXOLITINIB
     Indication: POLYCYTHAEMIA VERA
     Dosage: 10 MG, BID
     Route: 048
     Dates: start: 20200309

REACTIONS (9)
  - Fatigue [Unknown]
  - Pain [Recovering/Resolving]
  - Dizziness [Unknown]
  - Crying [Unknown]
  - Burning sensation [Unknown]
  - Dry mouth [Unknown]
  - Peripheral coldness [Unknown]
  - Neuropathy peripheral [Recovering/Resolving]
  - Chills [Unknown]
